FAERS Safety Report 19550617 (Version 1)
Quarter: 2021Q3

REPORT INFORMATION
  Report Type: Report from Study
  Country: NG (occurrence: NG)
  Receive Date: 20210714
  Receipt Date: 20210714
  Transmission Date: 20211014
  Serious: Yes (Hospitalization, Other)
  Sender: FDA-Public Use
  Company Number: NVSC2021NG089566

PATIENT
  Age: 42 Year
  Sex: Male

DRUGS (1)
  1. UPERIO [Suspect]
     Active Substance: SACUBITRIL\VALSARTAN
     Indication: CARDIAC FAILURE
     Dosage: 100 MG, BID
     Route: 048
     Dates: start: 202011

REACTIONS (2)
  - Wrong technique in product usage process [Not Recovered/Not Resolved]
  - Hepatic pain [Recovering/Resolving]

NARRATIVE: CASE EVENT DATE: 202106
